FAERS Safety Report 11980587 (Version 1)
Quarter: 2016Q1

REPORT INFORMATION
  Report Type: Report from Study
  Country: DE (occurrence: DE)
  Receive Date: 20160129
  Receipt Date: 20160129
  Transmission Date: 20160526
  Serious: Yes (Hospitalization)
  Sender: FDA-Public Use
  Company Number: DE-ABBVIE-13P-062-1092130-00

PATIENT
  Sex: Male
  Weight: 98.97 kg

DRUGS (1)
  1. HUMIRA [Suspect]
     Active Substance: ADALIMUMAB
     Indication: CROHN^S DISEASE
     Route: 058
     Dates: start: 20101015, end: 20110315

REACTIONS (1)
  - Intestinal stenosis [Recovered/Resolved]

NARRATIVE: CASE EVENT DATE: 20110314
